FAERS Safety Report 6132960-5 (Version None)
Quarter: 2009Q1

REPORT INFORMATION
  Report Type: 
  Country: None (occurrence: None)
  Receive Date: 20090326
  Receipt Date: 20090320
  Transmission Date: 20090719
  Serious: Yes (Life-Threatening)
  Sender: FDA-Public Use
  Company Number: PHHY2009US10407

PATIENT
  Age: 29 Year
  Sex: Male

DRUGS (3)
  1. CARBAMAZEPINE [Suspect]
  2. LIORESAL [Suspect]
  3. TRAZODONE HCL [Suspect]

REACTIONS (5)
  - DIALYSIS [None]
  - ENDOTRACHEAL INTUBATION [None]
  - HAEMODYNAMIC INSTABILITY [None]
  - INTENTIONAL OVERDOSE [None]
  - MECHANICAL VENTILATION [None]
